FAERS Safety Report 9600942 (Version 1)
Quarter: 2013Q4

REPORT INFORMATION
  Report Type: Spontaneous
  Country: US (occurrence: US)
  Receive Date: 20131004
  Receipt Date: 20131004
  Transmission Date: 20140711
  Serious: No
  Sender: FDA-Public Use
  Company Number: US-AMGEN-USASP2013038441

PATIENT
  Age: 54 Year
  Sex: Female
  Weight: 79 kg

DRUGS (9)
  1. ENBREL [Suspect]
     Indication: PRODUCT USED FOR UNKNOWN INDICATION
     Dosage: 25 MG, 2 TIMES/WK
     Route: 065
  2. METHOTREXAT                        /00113801/ [Concomitant]
     Dosage: 1 G, UNK
  3. CALCIUM [Concomitant]
     Dosage: 500 UNK, UNK
  4. VITAMIN E                          /00110501/ [Concomitant]
     Dosage: 800 UNIT, UNK
  5. NOVOLOG [Concomitant]
     Dosage: 100 ML, UNK
  6. LEVOTHYROXIN [Concomitant]
     Dosage: 88 MUG, UNK
  7. LISINOPRIL [Concomitant]
     Dosage: 5 MG, UNK
  8. MULTIVITAMINS, PLAIN [Concomitant]
     Dosage: UNK
  9. GLUCO + CHONDROITIN [Concomitant]
     Dosage: ADVANCED

REACTIONS (4)
  - Cough [Unknown]
  - Rhinorrhoea [Unknown]
  - Hypersensitivity [Unknown]
  - Injection site swelling [Unknown]
